FAERS Safety Report 26004394 (Version 1)
Quarter: 2025Q4

REPORT INFORMATION
  Report Type: Spontaneous
  Country: GB (occurrence: GB)
  Receive Date: 20251106
  Receipt Date: 20251106
  Transmission Date: 20260117
  Serious: Yes (Other)
  Sender: DEXCEL LTD.
  Company Number: GB-MHRA-EMIS-11697-e9cd8ff2-f45f-43a4-8874-af39de03bec7

PATIENT
  Age: 83 Year
  Sex: Female
  Weight: 93 kg

DRUGS (6)
  1. OMEPRAZOLE [Suspect]
     Active Substance: OMEPRAZOLE
     Dosage: TAKE ONE DAILY FOR ACID REFLUX, TAKING MINIMUM TO CONTROL SYMPOTMS (TRY EVERY OTHER DAY)
     Dates: start: 20250410, end: 20250616
  2. NAPROXEN [Suspect]
     Active Substance: NAPROXEN
     Indication: Arthralgia
     Dosage: ONE TO BE TAKEN TWICE A DAY TAKE ONE TWICE DAILY FOR PAIN, WITH FOOD, STOP IF INDIGESTION. NOT WI...
     Dates: start: 20250516, end: 20250616
  3. Spikevax JN.1 COVID-19 mRNA Vaccine 0.1mg/ml dispersion for injecti... [Concomitant]
     Dosage: 0.5 ML INTRAMUSCULAR
     Route: 030
     Dates: start: 20250426, end: 20250426
  4. Zeroderm ointment (Thornton + Ross Ltd)NON-MEDICINAL PRODUCT [Concomitant]
     Dosage: USE AS SOAP SUBSTITITE FOR WASHING IN BATH OR SHOWER (CAN JUST DISSOLVE SOME IN HOT BATH WATER / ...
     Dates: start: 20250616
  5. MOMETASONENON-MEDICINAL PRODUCT [Concomitant]
     Dosage: USE ONCE DAILY ON SORE IRRITATED SKIN. THIS IS STEROID OINTMENT. FOR UP TO 2 WEEKS
     Dates: start: 20250616
  6. BETAMETHASONENON-MEDICINAL PRODUCT [Concomitant]
     Dosage: DISSOLVE 2 X TABLETS IN 10 - 15ML WATER, RINSE AROUND MOUTH FOR 2-3 MINS THEN SPIT OUT TWICE DAIL...
     Dates: start: 20250616

REACTIONS (5)
  - Oral mucosal blistering [Unknown]
  - Genital ulceration [Unknown]
  - Genital blister [Unknown]
  - Mouth ulceration [Unknown]
  - Blister [Unknown]

NARRATIVE: CASE EVENT DATE: 20250602
